FAERS Safety Report 4608815-1 (Version None)
Quarter: 2005Q1

REPORT INFORMATION
  Report Type: 
  Country: None (occurrence: None)
  Receive Date: 20050311
  Receipt Date: 20050301
  Transmission Date: 20050727
  Serious: Yes (Death)
  Sender: FDA-Public Use
  Company Number: 2005RL000021

PATIENT
  Age: 69 Year
  Sex: Female

DRUGS (8)
  1. PROPAFENONE HYDROCHLORIDE [Suspect]
     Indication: ATRIAL FIBRILLATION
     Dosage: SEE IMAGE
     Route: 048
     Dates: start: 20040823, end: 20040823
  2. PROPAFENONE HYDROCHLORIDE [Suspect]
     Indication: ATRIAL FLUTTER
     Dosage: SEE IMAGE
     Route: 048
     Dates: start: 20040823, end: 20040823
  3. PROPAFENONE HYDROCHLORIDE [Suspect]
     Indication: ATRIAL FIBRILLATION
     Dosage: SEE IMAGE
     Route: 048
     Dates: start: 20050110, end: 20050110
  4. PROPAFENONE HYDROCHLORIDE [Suspect]
     Indication: ATRIAL FLUTTER
     Dosage: SEE IMAGE
     Route: 048
     Dates: start: 20050110, end: 20050110
  5. VERAPAMIL [Suspect]
     Indication: ESSENTIAL HYPERTENSION
     Dates: start: 20000101, end: 20050110
  6. DIGOXIN [Concomitant]
  7. ACENOCOUMAROL [Concomitant]
  8. GLICLAZIDE [Concomitant]

REACTIONS (13)
  - ASTHENIA [None]
  - ATRIAL FIBRILLATION [None]
  - BRAIN SCAN ABNORMAL [None]
  - CARDIO-RESPIRATORY ARREST [None]
  - CEREBELLAR SYNDROME [None]
  - DILATATION ATRIAL [None]
  - FALL [None]
  - MALAISE [None]
  - MITRAL VALVE INCOMPETENCE [None]
  - TRANSIENT ISCHAEMIC ATTACK [None]
  - VENTRICULAR HYPERTROPHY [None]
  - VERTIGO [None]
  - VOMITING [None]
